FAERS Safety Report 4808889-9 (Version None)
Quarter: 2005Q4

REPORT INFORMATION
  Report Type: 
  Country: None (occurrence: None)
  Receive Date: 20051025
  Receipt Date: 20051019
  Transmission Date: 20060501
  Serious: Yes (Hospitalization, Other)
  Sender: FDA-Public Use
  Company Number: US-JNJFOC-20051004411

PATIENT
  Age: 35 Year
  Sex: Male

DRUGS (1)
  1. LEVAQUIN [Suspect]
     Route: 048

REACTIONS (1)
  - ORCHITIS [None]
